FAERS Safety Report 25258738 (Version 1)
Quarter: 2025Q2

REPORT INFORMATION
  Report Type: Spontaneous
  Country: US (occurrence: US)
  Receive Date: 20250501
  Receipt Date: 20250501
  Transmission Date: 20250716
  Serious: Yes (Disabling, Other)
  Sender: BRECKENRIDGE PHARMACEUTICAL, INC.
  Company Number: US-Breckenridge Pharmaceutical, Inc.-2175931

PATIENT
  Age: 66 Year
  Sex: Female
  Weight: 97.273 kg

DRUGS (8)
  1. DULOXETINE HYDROCHLORIDE [Suspect]
     Active Substance: DULOXETINE HYDROCHLORIDE
     Indication: Panic attack
  2. OXYCODONE [Concomitant]
     Active Substance: OXYCODONE
  3. BUPIVACAINE [Concomitant]
     Active Substance: BUPIVACAINE
  4. HYDROMORPHONE HCL [Concomitant]
     Active Substance: HYDROMORPHONE HYDROCHLORIDE
  5. METOPROLOL SUCCINATE [Concomitant]
     Active Substance: METOPROLOL SUCCINATE
  6. SIMVASTATIN [Concomitant]
     Active Substance: SIMVASTATIN
  7. GABAPENTIN [Concomitant]
     Active Substance: GABAPENTIN
  8. SKELAXIN [Concomitant]
     Active Substance: METAXALONE

REACTIONS (6)
  - Derealisation [Recovered/Resolved]
  - Therapeutic product effect incomplete [Unknown]
  - Illusion [Recovered/Resolved]
  - Disorientation [Unknown]
  - Memory impairment [Unknown]
  - Cognitive disorder [Unknown]
